FAERS Safety Report 4709343-5 (Version None)
Quarter: 2005Q3

REPORT INFORMATION
  Report Type: 
  Country: None (occurrence: None)
  Receive Date: 20050708
  Receipt Date: 20050624
  Transmission Date: 20060218
  Serious: Yes (Hospitalization)
  Sender: FDA-Public Use
  Company Number: ESWYE777027JUN05

PATIENT
  Sex: Male
  Weight: 93 kg

DRUGS (3)
  1. ENBREL [Suspect]
     Indication: PSORIASIS
     Route: 058
     Dates: start: 20050518, end: 20050619
  2. ACETAMINOPHEN [Concomitant]
     Indication: PYREXIA
     Route: 048
     Dates: start: 20050609, end: 20050619
  3. ACETAMINOPHEN [Concomitant]
     Indication: SKIN TIGHTNESS

REACTIONS (5)
  - ASTHENIA [None]
  - BLOOD CHOLESTEROL INCREASED [None]
  - ERYTHRODERMIC PSORIASIS [None]
  - HAEMOGLOBIN DECREASED [None]
  - PYREXIA [None]
